APPROVED DRUG PRODUCT: VASOPRESSIN IN SODIUM CHLORIDE 0.9%
Active Ingredient: VASOPRESSIN
Strength: 20UNITS/100ML (0.2UNITS/ML)
Dosage Form/Route: SOLUTION;INTRAVENOUS
Application: N217569 | Product #001
Applicant: BAXTER HEALTHCARE CORP
Approved: Sep 29, 2023 | RLD: Yes | RS: Yes | Type: RX

PATENTS:
Patent 12447190 | Expires: Sep 27, 2044